FAERS Safety Report 14212442 (Version 1)
Quarter: 2017Q4

REPORT INFORMATION
  Report Type: Spontaneous
  Country: US (occurrence: US)
  Receive Date: 20171121
  Receipt Date: 20171121
  Transmission Date: 20180321
  Serious: No
  Sender: FDA-Public Use
  Company Number: US-BIOGEN-2017BV000423

PATIENT
  Age: 35 Year
  Sex: Male

DRUGS (3)
  1. FISH OIL SUPPLEMENT [Concomitant]
     Active Substance: FISH OIL
     Route: 065
  2. ALPROLIX [Suspect]
     Active Substance: EFTRENONACOG ALFA
     Indication: FACTOR IX DEFICIENCY
     Dosage: PROPHYLAXIS
     Route: 042
     Dates: start: 201708, end: 20171107
  3. CENTRUM VITAMIN [Concomitant]
     Route: 065

REACTIONS (3)
  - Chest discomfort [Recovered/Resolved]
  - Dyspnoea [Recovered/Resolved]
  - Headache [Recovered/Resolved]

NARRATIVE: CASE EVENT DATE: 201708
